FAERS Safety Report 16284858 (Version 1)
Quarter: 2019Q2

REPORT INFORMATION
  Report Type: Spontaneous
  Country: DE (occurrence: DE)
  Receive Date: 20190508
  Receipt Date: 20190508
  Transmission Date: 20190711
  Serious: Yes (Hospitalization, Other)
  Sender: FDA-Public Use
  Company Number: DE-ABBVIE-19K-062-2768995-00

PATIENT
  Sex: Female
  Weight: 65 kg

DRUGS (4)
  1. PREDNISOLONE. [Suspect]
     Active Substance: PREDNISOLONE
     Indication: COLITIS ULCERATIVE
     Dosage: AT LEAST 6 MONTHS BUT PULSE THERAPY JUST BEFORE THE EVENT
     Route: 048
     Dates: start: 201809
  2. SALOFALK [AMINOSALICYLIC ACID] [Concomitant]
     Active Substance: AMINOSALICYLIC ACID
     Indication: PRODUCT USED FOR UNKNOWN INDICATION
     Route: 065
     Dates: start: 201811
  3. VELAFEE [Concomitant]
     Indication: ORAL CONTRACEPTION
     Dosage: 30 UG, UNK (2000 MICROGRAMS/EE)
     Route: 048
     Dates: start: 201405
  4. HUMIRA [Suspect]
     Active Substance: ADALIMUMAB
     Indication: PRODUCT USED FOR UNKNOWN INDICATION
     Route: 058

REACTIONS (5)
  - Colitis ulcerative [Unknown]
  - Pulmonary embolism [Recovering/Resolving]
  - Eye haemorrhage [Unknown]
  - Sinus tachycardia [Unknown]
  - Thrombosis [Unknown]

NARRATIVE: CASE EVENT DATE: 20190304
